FAERS Safety Report 8819548 (Version 2)
Quarter: 2012Q4

REPORT INFORMATION
  Report Type: 
  Country: US (occurrence: US)
  Receive Date: 20120930
  Receipt Date: 20121029
  Transmission Date: 20130627
  Serious: No
  Sender: FDA-Public Use
  Company Number: US-009507513-1209USA010754

PATIENT
  Sex: Female

DRUGS (2)
  1. PEG-INTRON [Suspect]
     Indication: HEPATITIS C
     Dosage: UNK
     Dates: start: 20120914, end: 20121003
  2. RIBAVIRIN [Suspect]
     Indication: HEPATITIS C
     Dosage: UNK
     Dates: start: 20120914, end: 20121003

REACTIONS (5)
  - Abasia [Unknown]
  - Dysstasia [Unknown]
  - Vomiting [Unknown]
  - Malaise [Unknown]
  - Asthenia [Unknown]
